FAERS Safety Report 10746311 (Version 1)
Quarter: 2015Q1

REPORT INFORMATION
  Report Type: Report from Study
  Country: US (occurrence: US)
  Receive Date: 20150128
  Receipt Date: 20150128
  Transmission Date: 20150721
  Serious: Yes (Other)
  Sender: FDA-Public Use
  Company Number: US-ABBVIE-10P-163-0626066-00

PATIENT
  Sex: Male
  Weight: 59.02 kg

DRUGS (17)
  1. HUMIRA [Suspect]
     Active Substance: ADALIMUMAB
     Route: 058
     Dates: start: 2010, end: 201407
  2. CALCIUM [Concomitant]
     Active Substance: CALCIUM
     Indication: PRODUCT USED FOR UNKNOWN INDICATION
  3. ZINC [Concomitant]
     Active Substance: ZINC\ZINC CHLORIDE
     Indication: PRODUCT USED FOR UNKNOWN INDICATION
  4. HUMIRA [Suspect]
     Active Substance: ADALIMUMAB
     Route: 065
     Dates: start: 20150121
  5. KEPPRA [Concomitant]
     Active Substance: LEVETIRACETAM
     Indication: GENERALISED TONIC-CLONIC SEIZURE
  6. FOLIC ACID. [Concomitant]
     Active Substance: FOLIC ACID
     Indication: PRODUCT USED FOR UNKNOWN INDICATION
  7. HUMIRA [Suspect]
     Active Substance: ADALIMUMAB
     Indication: ANKYLOSING SPONDYLITIS
     Route: 058
     Dates: start: 200902, end: 2010
  8. ALENDRONATE SODIUM. [Concomitant]
     Active Substance: ALENDRONATE SODIUM
     Indication: OSTEOPENIA
  9. HUMIRA [Suspect]
     Active Substance: ADALIMUMAB
     Indication: ANKYLOSING SPONDYLITIS
     Route: 065
     Dates: start: 201407
  10. METHOTREXATE [Concomitant]
     Active Substance: METHOTREXATE
     Indication: ANKYLOSING SPONDYLITIS
  11. VITAMIN D3 [Concomitant]
     Active Substance: CHOLECALCIFEROL
     Indication: PRODUCT USED FOR UNKNOWN INDICATION
  12. ALENDRONATE SODIUM. [Concomitant]
     Active Substance: ALENDRONATE SODIUM
     Indication: OSTEOPOROSIS
  13. LIPITOR [Concomitant]
     Active Substance: ATORVASTATIN CALCIUM
     Indication: BLOOD CHOLESTEROL INCREASED
  14. MAGNESIUM [Concomitant]
     Active Substance: MAGNESIUM
     Indication: PRODUCT USED FOR UNKNOWN INDICATION
  15. COLACE [Concomitant]
     Active Substance: DOCUSATE SODIUM
     Indication: CONSTIPATION
  16. VITAMIN B12 [Concomitant]
     Active Substance: CYANOCOBALAMIN
     Indication: HYPOVITAMINOSIS
  17. ASPIRIN. [Concomitant]
     Active Substance: ASPIRIN
     Indication: PRODUCT USED FOR UNKNOWN INDICATION

REACTIONS (8)
  - Musculoskeletal stiffness [Not Recovered/Not Resolved]
  - Nasopharyngitis [Recovering/Resolving]
  - Arthritis [Recovered/Resolved]
  - Blood testosterone decreased [Not Recovered/Not Resolved]
  - Gastric ulcer [Recovered/Resolved]
  - Adenocarcinoma gastric [Recovered/Resolved]
  - Abdominal pain [Recovered/Resolved]
  - Respiratory tract congestion [Recovering/Resolving]

NARRATIVE: CASE EVENT DATE: 2009
